FAERS Safety Report 20832205 (Version 2)
Quarter: 2022Q2

REPORT INFORMATION
  Report Type: Spontaneous
  Country: US (occurrence: US)
  Receive Date: 20220516
  Receipt Date: 20220524
  Transmission Date: 20220721
  Serious: Yes (Other)
  Sender: FDA-Public Use
  Company Number: US-AUROBINDO-AUR-APL-2022-016828

PATIENT
  Age: 52 Year
  Sex: Male

DRUGS (15)
  1. METHOTREXATE [Suspect]
     Active Substance: METHOTREXATE
     Indication: Angiocentric lymphoma
     Dosage: 3.5 GRAM PER SQUARE METRE,  ON DAY 1
     Route: 065
  2. VINCRISTINE [Suspect]
     Active Substance: VINCRISTINE
     Indication: Angiocentric lymphoma
     Dosage: 2 MILLIGRAM ON DAY 1
     Route: 065
  3. PROCARBAZINE [Suspect]
     Active Substance: PROCARBAZINE
     Indication: Angiocentric lymphoma
     Dosage: 200 MILLIGRAM, FOR DAYS 1?7.
     Route: 065
  4. BRENTUXIMAB VEDOTIN [Suspect]
     Active Substance: BRENTUXIMAB VEDOTIN
     Indication: Angiocentric lymphoma
     Dosage: 1.2 MILLIGRAM/KILOGRAM, ON DAY 7 OF THE FIRST CYCLE EVERY 3-4 WEEKS
     Route: 065
  5. VALACYCLOVIR [Concomitant]
     Active Substance: VALACYCLOVIR HYDROCHLORIDE
     Indication: Bell^s palsy
     Dosage: UNK
     Route: 065
  6. GEMCITABINE [Concomitant]
     Active Substance: GEMCITABINE
     Indication: Angiocentric lymphoma
     Dosage: 1000 MILLIGRAM/SQ. METER
     Route: 065
  7. OXALIPLATIN [Concomitant]
     Active Substance: OXALIPLATIN
     Indication: Angiocentric lymphoma
     Dosage: 100 MILLIGRAM/SQ. METER
     Route: 065
  8. ASPARAGINASE [Concomitant]
     Active Substance: ASPARAGINASE
     Indication: Angiocentric lymphoma
     Dosage: 2,500 U/M2
     Route: 065
  9. DEXAMETHASONE [Concomitant]
     Active Substance: DEXAMETHASONE
     Indication: Angiocentric lymphoma
     Dosage: 20 MILLIGRAM
     Route: 065
  10. BUSULFAN [Concomitant]
     Active Substance: BUSULFAN
     Indication: Angiocentric lymphoma
     Dosage: 3.2 MILLIGRAM/KILOGRAM
     Route: 065
  11. THIOTEPA [Concomitant]
     Active Substance: THIOTEPA
     Indication: Angiocentric lymphoma
     Dosage: 250 MILLIGRAM/SQ. METER
     Route: 065
  12. CYCLOPHOSPHAMIDE [Concomitant]
     Active Substance: CYCLOPHOSPHAMIDE
     Indication: Angiocentric lymphoma
     Dosage: 60 MILLIGRAM/KILOGRAM
     Route: 065
  13. CYTARABINE [Concomitant]
     Active Substance: CYTARABINE
     Indication: Pleocytosis
     Dosage: 10 MILLIGRAM
     Route: 037
  14. HYDROCORTISONE [Concomitant]
     Active Substance: HYDROCORTISONE
     Indication: Pleocytosis
     Dosage: 10 MILLIGRAM
     Route: 037
  15. ROMIDEPSIN [Concomitant]
     Active Substance: ROMIDEPSIN
     Indication: Product used for unknown indication
     Dosage: 14 MILLIGRAM/SQ. METER
     Route: 065

REACTIONS (2)
  - Pneumonia fungal [Unknown]
  - Drug ineffective [Unknown]
